FAERS Safety Report 8924964 (Version 1)
Quarter: 2012Q4

REPORT INFORMATION
  Report Type: 
  Country: US (occurrence: US)
  Receive Date: 20121126
  Receipt Date: 20121126
  Transmission Date: 20130627
  Serious: Yes (Death, Other)
  Sender: FDA-Public Use
  Company Number: US-BAYER-2012-122132

PATIENT
  Age: 40 Year
  Sex: Female
  Weight: 93.42 kg

DRUGS (5)
  1. YAZ [Suspect]
  2. SERTRALINE [Concomitant]
     Dosage: 100 mg, two tablets daily
     Route: 048
     Dates: start: 20090410, end: 20090805
  3. PIROXICAM [Concomitant]
     Dosage: 20 mg, QD
     Route: 048
     Dates: start: 20090717
  4. METHYLPREDNISOLONE [Concomitant]
     Dosage: 4 mg,take 6 tablets today, then decrease by 1 tablet daily until gone
     Route: 048
     Dates: start: 20090824
  5. PROAIR HFA [Concomitant]
     Dosage: 108 mcg/24hr,2 puffs four times daily, Inhale by mouth
     Dates: start: 20090824

REACTIONS (3)
  - Pulmonary embolism [Fatal]
  - Deep vein thrombosis [Fatal]
  - Cholelithiasis [None]
